FAERS Safety Report 13425839 (Version 2)
Quarter: 2017Q3

REPORT INFORMATION
  Report Type: Spontaneous
  Country: US (occurrence: US)
  Receive Date: 20170411
  Receipt Date: 20170922
  Transmission Date: 20171127
  Serious: No
  Sender: FDA-Public Use
  Company Number: US-JNJFOC-20080300804

PATIENT
  Age: 79 Year
  Sex: Male
  Weight: 73.48 kg

DRUGS (6)
  1. FENTANYL TRANSDERMAL SYSTEM [Suspect]
     Active Substance: FENTANYL
     Indication: INTERVERTEBRAL DISC PROTRUSION
     Route: 062
     Dates: start: 2008
  2. FENTANYL TRANSDERMAL SYSTEM [Suspect]
     Active Substance: FENTANYL
     Indication: SPINAL COLUMN STENOSIS
     Route: 062
     Dates: start: 2008
  3. FENTANYL TRANSDERMAL SYSTEM [Suspect]
     Active Substance: FENTANYL
     Indication: SPINAL COLUMN STENOSIS
     Route: 062
     Dates: start: 200705, end: 2008
  4. FENTANYL TRANSDERMAL SYSTEM [Suspect]
     Active Substance: FENTANYL
     Indication: PAIN
     Route: 062
     Dates: start: 2008
  5. FENTANYL TRANSDERMAL SYSTEM [Suspect]
     Active Substance: FENTANYL
     Indication: PAIN
     Route: 062
     Dates: start: 200705, end: 2008
  6. FENTANYL TRANSDERMAL SYSTEM [Suspect]
     Active Substance: FENTANYL
     Indication: INTERVERTEBRAL DISC PROTRUSION
     Route: 062
     Dates: start: 200705, end: 2008

REACTIONS (3)
  - Product quality issue [Unknown]
  - Wrong technique in product usage process [Unknown]
  - Drug effect decreased [Not Recovered/Not Resolved]

NARRATIVE: CASE EVENT DATE: 200802
